FAERS Safety Report 19661998 (Version 6)
Quarter: 2022Q4

REPORT INFORMATION
  Report Type: Spontaneous
  Country: US (occurrence: US)
  Receive Date: 20210805
  Receipt Date: 20221222
  Transmission Date: 20230112
  Serious: No
  Sender: FDA-Public Use
  Company Number: US-PFIZER INC-2021641864

PATIENT
  Age: 50 Year
  Sex: Female

DRUGS (1)
  1. XELJANZ [Suspect]
     Active Substance: TOFACITINIB CITRATE
     Indication: Rheumatoid arthritis
     Dosage: 5 MG, 2X/DAY
     Route: 048
     Dates: start: 20210530

REACTIONS (8)
  - Depression [Not Recovered/Not Resolved]
  - Drug ineffective [Unknown]
  - Condition aggravated [Unknown]
  - Product dose omission in error [Unknown]
  - Paraesthesia [Unknown]
  - Hypoaesthesia [Unknown]
  - Pain [Recovering/Resolving]
  - Burning sensation [Recovered/Resolved]

NARRATIVE: CASE EVENT DATE: 20210101
